FAERS Safety Report 19246217 (Version 1)
Quarter: 2021Q2

REPORT INFORMATION
  Report Type: Spontaneous
  Country: AU (occurrence: AU)
  Receive Date: 20210512
  Receipt Date: 20210512
  Transmission Date: 20210717
  Serious: Yes (Hospitalization)
  Sender: FDA-Public Use
  Company Number: AU-AMGEN-AUSSP2021068201

PATIENT
  Age: 74 Year
  Sex: Female

DRUGS (3)
  1. PROLIA [Suspect]
     Active Substance: DENOSUMAB
     Indication: PRODUCT USED FOR UNKNOWN INDICATION
     Dosage: UNK
     Route: 065
     Dates: start: 2016
  2. MAXIDEX [Concomitant]
     Active Substance: DEXAMETHASONE
     Dosage: UNK
  3. EFEXOR [Concomitant]
     Active Substance: VENLAFAXINE HYDROCHLORIDE
     Dosage: UNK

REACTIONS (10)
  - Hypoaesthesia [Recovering/Resolving]
  - Asthenia [Recovering/Resolving]
  - Dry throat [Recovering/Resolving]
  - Oral mucosal roughening [Recovering/Resolving]
  - Pruritus [Recovered/Resolved]
  - Dry mouth [Recovering/Resolving]
  - Swollen tongue [Recovering/Resolving]
  - Vulvovaginal pruritus [Recovered/Resolved]
  - Hypersensitivity [Recovering/Resolving]
  - Pain in extremity [Recovering/Resolving]

NARRATIVE: CASE EVENT DATE: 20210220
